APPROVED DRUG PRODUCT: TAMIFLU
Active Ingredient: OSELTAMIVIR PHOSPHATE
Strength: EQ 6MG BASE/ML
Dosage Form/Route: FOR SUSPENSION;ORAL
Application: N021246 | Product #002 | TE Code: AB
Applicant: HOFFMANN LA ROCHE INC
Approved: Mar 21, 2011 | RLD: Yes | RS: Yes | Type: RX